FAERS Safety Report 24443036 (Version 1)
Quarter: 2024Q4

REPORT INFORMATION
  Report Type: Spontaneous
  Country: US (occurrence: US)
  Receive Date: 20241016
  Receipt Date: 20241016
  Transmission Date: 20250114
  Serious: Yes (Other)
  Sender: TAKEDA
  Company Number: US-TAKEDA-2024TUS099286

PATIENT
  Sex: Female

DRUGS (6)
  1. GATTEX [Suspect]
     Active Substance: TEDUGLUTIDE\WATER
     Indication: Product used for unknown indication
     Dosage: UNK
     Route: 065
  2. GATTEX [Suspect]
     Active Substance: TEDUGLUTIDE\WATER
     Indication: Product used for unknown indication
     Dosage: UNK
     Route: 065
  3. GATTEX [Suspect]
     Active Substance: TEDUGLUTIDE\WATER
     Indication: Product used for unknown indication
     Dosage: UNK
     Route: 065
  4. GATTEX [Suspect]
     Active Substance: TEDUGLUTIDE\WATER
     Indication: Product used for unknown indication
     Dosage: UNK
     Route: 065
  5. INFLUENZA VIRUS VACCINE [Suspect]
     Active Substance: INFLUENZA VIRUS VACCINE
     Indication: Product used for unknown indication
     Dosage: UNK
     Route: 065
  6. COVID-19 VACCINE NOS [Suspect]
     Active Substance: COVID-19 VACCINE
     Indication: Product used for unknown indication
     Dosage: UNK
     Route: 065

REACTIONS (10)
  - Myocardial infarction [Recovering/Resolving]
  - Neoplasm malignant [Recovering/Resolving]
  - Cataract [Recovering/Resolving]
  - Sepsis [Recovering/Resolving]
  - Renal disorder [Recovering/Resolving]
  - Haemorrhoids [Recovering/Resolving]
  - Hernia [Recovering/Resolving]
  - Blood iron decreased [Recovering/Resolving]
  - Immunisation reaction [Recovering/Resolving]
  - Lymphadenopathy [Recovering/Resolving]
